FAERS Safety Report 16387055 (Version 2)
Quarter: 2019Q3

REPORT INFORMATION
  Report Type: Spontaneous
  Country: US (occurrence: US)
  Receive Date: 20190604
  Receipt Date: 20190826
  Transmission Date: 20191004
  Serious: Yes (Other)
  Sender: FDA-Public Use
  Company Number: US-ASTRAZENECA-2019SE80960

PATIENT
  Age: 55 Year
  Sex: Female
  Weight: 125.2 kg

DRUGS (50)
  1. NEXIUM [Suspect]
     Active Substance: ESOMEPRAZOLE MAGNESIUM
     Indication: GASTROOESOPHAGEAL REFLUX DISEASE
     Route: 048
     Dates: start: 1976
  2. ZEGERID OTC [Suspect]
     Active Substance: OMEPRAZOLE\SODIUM BICARBONATE
     Indication: DYSPEPSIA
     Route: 065
  3. DIOVAN [Concomitant]
     Active Substance: VALSARTAN
  4. VERAPAMIL [Concomitant]
     Active Substance: VERAPAMIL HYDROCHLORIDE
  5. SIMVASTATIN. [Concomitant]
     Active Substance: SIMVASTATIN
  6. HYDROCODONE BITARTRATE AND ACETAMINOPHEN [Concomitant]
     Active Substance: ACETAMINOPHEN\HYDROCODONE BITARTRATE
  7. AMLODIPINE [Concomitant]
     Active Substance: AMLODIPINE BESYLATE
  8. NEXIUM 24HR [Suspect]
     Active Substance: ESOMEPRAZOLE MAGNESIUM
     Indication: DYSPEPSIA
     Route: 048
     Dates: start: 2010, end: 2011
  9. PRILOSEC [Suspect]
     Active Substance: OMEPRAZOLE MAGNESIUM
     Indication: GASTROOESOPHAGEAL REFLUX DISEASE
     Route: 048
     Dates: start: 1975
  10. PROTONIX [Suspect]
     Active Substance: PANTOPRAZOLE SODIUM
     Route: 065
  11. TYLENOL [Concomitant]
     Active Substance: ACETAMINOPHEN
  12. RANITIDINE. [Concomitant]
     Active Substance: RANITIDINE
  13. TUMS [Concomitant]
     Active Substance: CALCIUM CARBONATE
  14. MILK OF MAGNESIA [Concomitant]
     Active Substance: MAGNESIUM HYDROXIDE
  15. FUROSEMIDE. [Concomitant]
     Active Substance: FUROSEMIDE
  16. METFORMIN [Concomitant]
     Active Substance: METFORMIN HYDROCHLORIDE
  17. VALSARTAN. [Concomitant]
     Active Substance: VALSARTAN
  18. GABAPENTIN. [Concomitant]
     Active Substance: GABAPENTIN
  19. NEXIUM [Suspect]
     Active Substance: ESOMEPRAZOLE MAGNESIUM
     Indication: DYSPEPSIA
     Route: 048
     Dates: start: 2010, end: 2011
  20. NEXIUM 24HR [Suspect]
     Active Substance: ESOMEPRAZOLE MAGNESIUM
     Indication: GASTROOESOPHAGEAL REFLUX DISEASE
     Route: 048
     Dates: start: 2010, end: 2011
  21. PRILOSEC [Suspect]
     Active Substance: OMEPRAZOLE MAGNESIUM
     Indication: DYSPEPSIA
     Dosage: GENERIC
     Route: 065
  22. DEXILANT [Suspect]
     Active Substance: DEXLANSOPRAZOLE
     Indication: GASTROOESOPHAGEAL REFLUX DISEASE
     Dosage: GENERIC
     Route: 065
     Dates: start: 2015
  23. IBUPROFEN. [Concomitant]
     Active Substance: IBUPROFEN
  24. PEPCID [Concomitant]
     Active Substance: FAMOTIDINE
  25. PLAVIX [Concomitant]
     Active Substance: CLOPIDOGREL BISULFATE
  26. NEXIUM [Suspect]
     Active Substance: ESOMEPRAZOLE MAGNESIUM
     Indication: DYSPEPSIA
     Route: 048
     Dates: start: 1976
  27. DEXILANT [Suspect]
     Active Substance: DEXLANSOPRAZOLE
     Indication: DYSPEPSIA
     Route: 065
     Dates: start: 2010, end: 2011
  28. PREVACID [Suspect]
     Active Substance: LANSOPRAZOLE
     Indication: DYSPEPSIA
     Route: 065
     Dates: start: 2010, end: 2011
  29. LASIX [Concomitant]
     Active Substance: FUROSEMIDE
  30. ASPIRIN. [Concomitant]
     Active Substance: ASPIRIN
  31. CYCLOBENZAPRINE. [Concomitant]
     Active Substance: CYCLOBENZAPRINE
  32. LORATADINE. [Concomitant]
     Active Substance: LORATADINE
  33. NEXIUM [Suspect]
     Active Substance: ESOMEPRAZOLE MAGNESIUM
     Indication: GASTROOESOPHAGEAL REFLUX DISEASE
     Route: 048
     Dates: start: 2010, end: 2011
  34. PRILOSEC [Suspect]
     Active Substance: OMEPRAZOLE MAGNESIUM
     Indication: GASTROOESOPHAGEAL REFLUX DISEASE
     Dosage: GENERIC
     Route: 065
  35. PREVACID [Suspect]
     Active Substance: LANSOPRAZOLE
     Indication: GASTROOESOPHAGEAL REFLUX DISEASE
     Route: 065
     Dates: start: 2010, end: 2011
  36. PEPTO-BISMOL [Concomitant]
     Active Substance: BISMUTH SUBSALICYLATE
  37. ZEGERID OTC [Suspect]
     Active Substance: OMEPRAZOLE\SODIUM BICARBONATE
     Indication: GASTROOESOPHAGEAL REFLUX DISEASE
     Route: 065
  38. PREVACID [Suspect]
     Active Substance: LANSOPRAZOLE
     Indication: DYSPEPSIA
     Dosage: GENERIC
     Route: 065
     Dates: start: 1987
  39. TRAMADOL. [Concomitant]
     Active Substance: TRAMADOL
  40. LYRICA [Concomitant]
     Active Substance: PREGABALIN
  41. PRILOSEC [Suspect]
     Active Substance: OMEPRAZOLE MAGNESIUM
     Indication: DYSPEPSIA
     Route: 048
     Dates: start: 1975
  42. DEXILANT [Suspect]
     Active Substance: DEXLANSOPRAZOLE
     Indication: GASTROOESOPHAGEAL REFLUX DISEASE
     Route: 065
     Dates: start: 2010, end: 2011
  43. VITAMIN D [Concomitant]
     Active Substance: VITAMIN D NOS
  44. CIMETIDINE [Concomitant]
     Active Substance: CIMETIDINE
  45. FAMOTIDINE. [Concomitant]
     Active Substance: FAMOTIDINE
  46. DEXILANT [Suspect]
     Active Substance: DEXLANSOPRAZOLE
     Indication: DYSPEPSIA
     Dosage: GENERIC
     Route: 065
     Dates: start: 2015
  47. PREVACID [Suspect]
     Active Substance: LANSOPRAZOLE
     Indication: GASTROOESOPHAGEAL REFLUX DISEASE
     Dosage: GENERIC
     Route: 065
     Dates: start: 1987
  48. ZANTAC 150 (RANITIDINE HYDROCHLORIDE) [Concomitant]
     Active Substance: RANITIDINE HYDROCHLORIDE
  49. MAALOX ANTACID [Concomitant]
     Active Substance: ALUMINUM HYDROXIDE\DIMETHICONE\MAGNESIUM HYDROXIDE
  50. MYLANTA [Concomitant]
     Active Substance: ALUMINUM HYDROXIDE\DIMETHICONE\MAGNESIUM HYDROXIDE

REACTIONS (3)
  - Chronic kidney disease [Not Recovered/Not Resolved]
  - Renal failure [Unknown]
  - Acute kidney injury [Unknown]

NARRATIVE: CASE EVENT DATE: 2012
